FAERS Safety Report 5802197-5 (Version None)
Quarter: 2008Q3

REPORT INFORMATION
  Report Type: 
  Country: None (occurrence: None)
  Receive Date: 20080707
  Receipt Date: 20080702
  Transmission Date: 20090109
  Serious: Yes (Life-Threatening, Hospitalization)
  Sender: FDA-Public Use
  Company Number: GB-WYE-G01810608

PATIENT
  Age: 95 Year
  Sex: Female

DRUGS (8)
  1. PIPERACILLIN AND TAZOBACTAM [Suspect]
     Dates: start: 20080609, end: 20080620
  2. BUMETANIDE [Concomitant]
     Dosage: UNKNOWN
  3. QUININE SULFATE [Concomitant]
     Dosage: UNKNOWN
  4. FERROUS SULFATE TAB [Concomitant]
     Dosage: UNKNOWN
  5. GLICLAZIDE [Concomitant]
     Dosage: UNKNOWN
  6. OMEPRAZOLE [Concomitant]
     Dosage: UNKNOWN
  7. CIPROFLOXACIN [Suspect]
     Dates: start: 20080611, end: 20080615
  8. CHLORPHENAMINE [Concomitant]
     Dosage: UNKNOWN

REACTIONS (4)
  - BLOOD ALKALINE PHOSPHATASE INCREASED [None]
  - CELLULITIS [None]
  - CLOSTRIDIUM DIFFICILE COLITIS [None]
  - GAMMA-GLUTAMYLTRANSFERASE INCREASED [None]
